FAERS Safety Report 5140514-2 (Version None)
Quarter: 2006Q4

REPORT INFORMATION
  Report Type: 
  Country: None (occurrence: None)
  Receive Date: 20061025
  Receipt Date: 20061011
  Transmission Date: 20070319
  Serious: Yes (Hospitalization)
  Sender: FDA-Public Use
  Company Number: REM_00283_2006

PATIENT
  Age: 62 Year
  Sex: Female
  Weight: 83 kg

DRUGS (10)
  1. REMODULIN [Suspect]
     Indication: PULMONARY HYPERTENSION
     Dosage: 21 NG/KG/MIN CONTINUOUS IV
     Route: 042
     Dates: start: 20060904
  2. FUROSEMIDE [Concomitant]
  3. WARFARIN SODIUM [Concomitant]
  4. ESTRADIOL INJ [Concomitant]
  5. LORAZEPAM [Concomitant]
  6. POTASSIUM CHLORIDE [Concomitant]
  7. ASCORBIC ACID [Concomitant]
  8. CALCIUM + VITAMIN D [Concomitant]
  9. MULTI-VITAMIN [Concomitant]
  10. VICODIN [Concomitant]

REACTIONS (4)
  - AGITATION [None]
  - ANXIETY [None]
  - DEPRESSION [None]
  - SUICIDE ATTEMPT [None]
